FAERS Safety Report 23280652 (Version 1)
Quarter: 2023Q4

REPORT INFORMATION
  Report Type: Spontaneous
  Country: US (occurrence: US)
  Receive Date: 20231211
  Receipt Date: 20231211
  Transmission Date: 20240109
  Serious: No
  Sender: FDA-Public Use
  Company Number: US-PRINSTON PHARMACEUTICAL INC.-2023PRN00493

PATIENT
  Age: 40 Year

DRUGS (1)
  1. LISDEXAMFETAMINE DIMESYLATE [Suspect]
     Active Substance: LISDEXAMFETAMINE DIMESYLATE
     Indication: Attention deficit hyperactivity disorder
     Dosage: 50 MG, 1X/DAY
     Dates: start: 20230912, end: 20230930

REACTIONS (21)
  - Nystagmus [Unknown]
  - Confusional state [Unknown]
  - Social avoidant behaviour [Unknown]
  - Change in sustained attention [Unknown]
  - Akathisia [Unknown]
  - Fatigue [Unknown]
  - Hyperacusis [Unknown]
  - Heterophoria [Unknown]
  - Disturbance in attention [Unknown]
  - Feeling abnormal [Unknown]
  - Vision blurred [Unknown]
  - Hyperhidrosis [Unknown]
  - Irritability [Unknown]
  - Anxiety [Unknown]
  - Feeling jittery [Unknown]
  - Insomnia [Unknown]
  - Agitation [Unknown]
  - Dyskinesia [Unknown]
  - Depression [Unknown]
  - Product formulation issue [Unknown]
  - Product substitution issue [Unknown]

NARRATIVE: CASE EVENT DATE: 20230901
